FAERS Safety Report 5363604-8 (Version None)
Quarter: 2007Q2

REPORT INFORMATION
  Report Type: 
  Country: None (occurrence: None)
  Receive Date: 20070620
  Receipt Date: 20070612
  Transmission Date: 20071010
  Serious: Yes (Life-Threatening, Hospitalization)
  Sender: FDA-Public Use
  Company Number: B0474007A

PATIENT
  Age: 77 Year
  Sex: Female
  Weight: 64 kg

DRUGS (6)
  1. LAPATINIB [Suspect]
     Route: 048
     Dates: start: 20070514
  2. CAPECITABINE [Suspect]
     Route: 048
     Dates: start: 20070514
  3. LYRICA [Concomitant]
  4. BONDORMIN [Concomitant]
  5. TRAMADEX [Concomitant]
  6. ZOLEDRONIC ACID [Concomitant]

REACTIONS (4)
  - ANAEMIA [None]
  - GASTROINTESTINAL HAEMORRHAGE [None]
  - MOUTH HAEMORRHAGE [None]
  - RECTAL HAEMORRHAGE [None]
